FAERS Safety Report 9688996 (Version 1)
Quarter: 2013Q4

REPORT INFORMATION
  Report Type: Spontaneous
  Country: SZ (occurrence: None)
  Receive Date: 20131112
  Receipt Date: 20131112
  Transmission Date: 20140711
  Serious: Yes (Hospitalization)
  Sender: FDA-Public Use
  Company Number: 20130623

PATIENT
  Age: 51 Year
  Sex: Female

DRUGS (1)
  1. FERINJECT (FERRIC CARBOXYMALTOSE-VIFOR) [Suspect]
     Indication: PRODUCT USED FOR UNKNOWN INDICATION
     Route: 042

REACTIONS (3)
  - Influenza like illness [None]
  - Chills [None]
  - Influenza like illness [None]
